FAERS Safety Report 17478923 (Version 2)
Quarter: 2020Q2

REPORT INFORMATION
  Report Type: Report from Study
  Country: US (occurrence: US)
  Receive Date: 20200228
  Receipt Date: 20200403
  Transmission Date: 20200713
  Serious: Yes (Other)
  Sender: FDA-Public Use
  Company Number: US-BAYER-2020-033764

PATIENT
  Age: 77 Year
  Sex: Male

DRUGS (18)
  1. TRAMADOL. [Concomitant]
     Active Substance: TRAMADOL
  2. ATORVASTATIN [Concomitant]
     Active Substance: ATORVASTATIN
  3. DORZOLAMIDE/TIMOLOL [DORZOLAMIDE;TIMOLOL MALEATE] [Concomitant]
  4. METHYLPREDNISOLONE. [Concomitant]
     Active Substance: METHYLPREDNISOLONE
  5. JAKAFI [Concomitant]
     Active Substance: RUXOLITINIB
     Indication: MYELOFIBROSIS
     Dosage: 5 UNK
  6. TYLENOL [Concomitant]
     Active Substance: ACETAMINOPHEN
  7. JAKAFI [Concomitant]
     Active Substance: RUXOLITINIB
     Indication: MYELOFIBROSIS
     Dosage: 5 MG, BID
  8. JAKAFI [Concomitant]
     Active Substance: RUXOLITINIB
     Indication: MYELOFIBROSIS
     Dosage: 5 UNK
  9. VITAMINS NOS [Concomitant]
     Active Substance: VITAMINS
  10. EZETIMIBE. [Concomitant]
     Active Substance: EZETIMIBE
  11. JAKAFI [Concomitant]
     Active Substance: RUXOLITINIB
     Indication: MYELOFIBROSIS
     Dosage: 5 MG, QD
     Route: 048
  12. DICLOFENAC [Concomitant]
     Active Substance: DICLOFENAC
  13. JAKAFI [Concomitant]
     Active Substance: RUXOLITINIB
     Indication: MYELOFIBROSIS
     Dosage: 5 MG, QD
     Route: 048
     Dates: start: 20190408
  14. JAKAFI [Concomitant]
     Active Substance: RUXOLITINIB
     Indication: MYELOFIBROSIS
     Dosage: 10 UNK
  15. JAKAFI [Concomitant]
     Active Substance: RUXOLITINIB
     Indication: MYELOFIBROSIS
     Dosage: 5 MG IN MORNING AND EVENING
     Dates: start: 201904
  16. CLOPIDOGREL BISULFATE. [Concomitant]
     Active Substance: CLOPIDOGREL BISULFATE
  17. ASPIRIN. [Suspect]
     Active Substance: ASPIRIN
     Indication: PRODUCT USED FOR UNKNOWN INDICATION
  18. JAKAFI [Concomitant]
     Active Substance: RUXOLITINIB
     Indication: MYELOFIBROSIS
     Dosage: 5 MG, BID
     Route: 048
     Dates: start: 20190909

REACTIONS (2)
  - Haemorrhage [None]
  - Labelled drug-drug interaction medication error [None]
